FAERS Safety Report 6916795-9 (Version None)
Quarter: 2010Q3

REPORT INFORMATION
  Report Type: 
  Country: None (occurrence: None)
  Receive Date: 20100810
  Receipt Date: 20100730
  Transmission Date: 20110219
  Serious: Yes (Death, Hospitalization)
  Sender: FDA-Public Use
  Company Number: ID-JNJFOC-20100701113

PATIENT
  Sex: Female
  Weight: 48 kg

DRUGS (6)
  1. DORIBAX [Suspect]
     Indication: PNEUMONIA
     Route: 041
     Dates: start: 20100624, end: 20100701
  2. WARFARIN SODIUM [Suspect]
     Indication: PRODUCT USED FOR UNKNOWN INDICATION
  3. PARACETAMOL [Concomitant]
     Route: 065
  4. RANITIDINE [Concomitant]
     Route: 042
  5. AMBROXOL [Concomitant]
  6. CAPTOPRIL [Concomitant]

REACTIONS (3)
  - CONVULSION [None]
  - HEADACHE [None]
  - VOMITING [None]
